FAERS Safety Report 6007084-8 (Version None)
Quarter: 2008Q4

REPORT INFORMATION
  Report Type: 
  Country: None (occurrence: None)
  Receive Date: 20081217
  Receipt Date: 20080108
  Transmission Date: 20090506
  Serious: No
  Sender: FDA-Public Use
  Company Number: US-ASTRAZENECA-2008UW00589

PATIENT
  Age: 26767 Day
  Sex: Female
  Weight: 89.4 kg

DRUGS (2)
  1. CRESTOR [Suspect]
     Indication: BLOOD CHOLESTEROL INCREASED
     Route: 048
     Dates: start: 20071230
  2. BENICAR [Concomitant]

REACTIONS (5)
  - DIARRHOEA [None]
  - HOT FLUSH [None]
  - MYALGIA [None]
  - OESOPHAGEAL PAIN [None]
  - THROAT IRRITATION [None]
